FAERS Safety Report 16716193 (Version 1)
Quarter: 2019Q3

REPORT INFORMATION
  Report Type: Spontaneous
  Country: MX (occurrence: MX)
  Receive Date: 20190819
  Receipt Date: 20190819
  Transmission Date: 20191005
  Serious: Yes (Hospitalization, Other)
  Sender: FDA-Public Use
  Company Number: MX-PFIZER INC-2019349311

PATIENT
  Age: 48 Year
  Sex: Female

DRUGS (4)
  1. PALBOCICLIB [Suspect]
     Active Substance: PALBOCICLIB
     Dosage: 100 MG, 1X/DAY CYCLIC 3:1
     Route: 048
  2. FULVESTRANT. [Concomitant]
     Active Substance: FULVESTRANT
     Indication: BREAST CANCER METASTATIC
     Dosage: 500 MG, UNK
     Route: 030
  3. GOSERELIN [Concomitant]
     Active Substance: GOSERELIN
     Dosage: UNK
  4. PALBOCICLIB [Suspect]
     Active Substance: PALBOCICLIB
     Indication: BREAST CANCER METASTATIC
     Dosage: 125 MG, EVERY 24 HOURS,CYCLIC 3:1
     Route: 048

REACTIONS (6)
  - White blood cell count decreased [Unknown]
  - Haemoglobin decreased [Unknown]
  - Spinal fracture [Unknown]
  - Dyspnoea exertional [Unknown]
  - Haematocrit decreased [Unknown]
  - Febrile neutropenia [Unknown]
